FAERS Safety Report 9493651 (Version 1)
Quarter: 2013Q3

REPORT INFORMATION
  Report Type: Spontaneous
  Country: US (occurrence: US)
  Receive Date: 20130902
  Receipt Date: 20130902
  Transmission Date: 20140515
  Serious: No
  Sender: FDA-Public Use
  Company Number: US-JNJFOC-20130813877

PATIENT
  Sex: Female
  Weight: 124.74 kg

DRUGS (2)
  1. DURAGESIC [Suspect]
     Indication: PAIN
     Route: 062
     Dates: start: 201307
  2. DILAUDID [Concomitant]
     Dosage: 4 MG-8 MG EVERY 3 TO 4 HOURS
     Route: 065
     Dates: start: 2012

REACTIONS (1)
  - Drug dose omission [Not Recovered/Not Resolved]
